FAERS Safety Report 9312109 (Version 1)
Quarter: 2013Q1

REPORT INFORMATION
  Report Type: Spontaneous
  Country: SE (occurrence: None)
  Receive Date: 20130128
  Receipt Date: 20130128
  Transmission Date: 20140127
  Serious: No
  Sender: FDA-Public Use
  Company Number: 2012SA088224

PATIENT
  Sex: Male

DRUGS (8)
  1. MULTAQ (DRONEDARONE)/ ORAL/ TABLET/400 MILLIGRAM (S) TIME TO ONSET: 612 DAY(S) (400 MG) [Suspect]
     Indication: ATRIAL FIBRILLATION
     Route: 048
     Dates: start: 20110221, end: 20121025
  2. ALVEDON [Concomitant]
  3. LEVITRA [Concomitant]
  4. OMEPRAZOLE [Concomitant]
  5. SIMVASTATIN [Concomitant]
  6. CITODON [Concomitant]
  7. TROMBYL [Concomitant]
  8. COZAAR [Concomitant]

REACTIONS (3)
  - Ventricular extrasystoles [None]
  - Electrocardiogram ST segment depression [None]
  - Exercise electrocardiogram abnormal [None]
